FAERS Safety Report 8910693 (Version 1)
Quarter: 2012Q4

REPORT INFORMATION
  Report Type: Spontaneous
  Country: MX (occurrence: None)
  Receive Date: 20121113
  Receipt Date: 20121113
  Transmission Date: 20130627
  Serious: Yes (Other)
  Sender: FDA-Public Use
  Company Number: ENTC2012-0509

PATIENT
  Sex: Female

DRUGS (3)
  1. STALEVO [Suspect]
     Indication: PARKINSON^S DISEASE
     Dosage: 3 tablets (100/25/200 mg) daily
     Dates: start: 20090522
  2. ASPIRIN [Concomitant]
  3. LEVODOPA [Concomitant]

REACTIONS (1)
  - Freezing phenomenon [None]
